FAERS Safety Report 6471371-X (Version None)
Quarter: 2009Q4

REPORT INFORMATION
  Report Type: 
  Country: None (occurrence: None)
  Receive Date: 20091203
  Receipt Date: 20080205
  Transmission Date: 20100525
  Serious: Yes (Other)
  Sender: FDA-Public Use
  Company Number: AT-ELI_LILLY_AND_COMPANY-AT200802000797

PATIENT
  Age: 13 Year
  Sex: Female

DRUGS (1)
  1. STRATTERA [Suspect]
     Indication: HYPERKINESIA
     Dosage: 25 MG, 2/D
     Route: 048
     Dates: start: 20071201, end: 20080101

REACTIONS (1)
  - CONDITION AGGRAVATED [None]
